FAERS Safety Report 21267424 (Version 4)
Quarter: 2022Q3

REPORT INFORMATION
  Report Type: Spontaneous
  Country: GB (occurrence: GB)
  Receive Date: 20220829
  Receipt Date: 20220908
  Transmission Date: 20221027
  Serious: Yes (Other)
  Sender: FDA-Public Use
  Company Number: GB-MHRA-MED-202208051248045580-ZBPRL

PATIENT

DRUGS (3)
  1. DICLOFENAC DIETHYLAMINE [Suspect]
     Active Substance: DICLOFENAC DIETHYLAMINE
     Indication: Ligament sprain
     Dosage: UNK, 2 PENCE BLOB
     Route: 061
     Dates: start: 20220802, end: 20220802
  2. LISDEXAMFETAMINE DIMESYLATE [Concomitant]
     Active Substance: LISDEXAMFETAMINE DIMESYLATE
     Indication: Attention deficit hyperactivity disorder
     Dosage: UNK
     Route: 065
     Dates: start: 20220605
  3. IBUPROFEN [Concomitant]
     Active Substance: IBUPROFEN
     Indication: Arthralgia
     Dosage: UNK
     Route: 065
     Dates: start: 20220802

REACTIONS (5)
  - Intranasal hypoaesthesia [Recovering/Resolving]
  - Nasal pruritus [Recovering/Resolving]
  - Hypoaesthesia oral [Recovering/Resolving]
  - Pharyngeal hypoaesthesia [Recovering/Resolving]
  - Abdominal pain upper [Recovering/Resolving]

NARRATIVE: CASE EVENT DATE: 20220802
